FAERS Safety Report 9908889 (Version 2)
Quarter: 2014Q1

REPORT INFORMATION
  Report Type: Spontaneous
  Country: US (occurrence: US)
  Receive Date: 20140219
  Receipt Date: 20140219
  Transmission Date: 20141002
  Serious: Yes (Other)
  Sender: FDA-Public Use
  Company Number: US-PFIZER INC-2014025159

PATIENT
  Age: 67 Year
  Sex: Male

DRUGS (8)
  1. LYRICA [Suspect]
     Dosage: 75 MG, 2X/DAY
     Dates: start: 2012
  2. AFLURIA [Concomitant]
     Dosage: 45 UG,(2011-2012(PF) 45MCG (15 MCG X 3)/0.5 ML INTRAMUSCULAR SYRINGE)
     Route: 030
  3. AMOXI-CLAVULANICO [Concomitant]
     Dosage: 1 DF, 2X/DAY
     Route: 048
  4. ATORVASTATIN [Concomitant]
     Dosage: 40 MG, 1X/DAY
     Route: 048
  5. COLACE [Concomitant]
     Dosage: 100 MG, (ONLY TAKES WHEN NEEDED) 2X/DAY
     Route: 048
  6. NEXIUM [Concomitant]
     Dosage: 40 MG, (DELAYED RELEASE) 1X/DAY
     Route: 048
  7. PROTONIX [Concomitant]
     Dosage: 40 MG, (DELAYED RELEASE) UNK
  8. TUBERCULIN [Concomitant]
     Dosage: UNK PPD 5 TUB UNIT/0.1ML INTRADERMAL INJECTION SOLUTION
     Route: 023

REACTIONS (1)
  - Pneumonia [Unknown]
